FAERS Safety Report 7864109-2 (Version None)
Quarter: 2011Q4

REPORT INFORMATION
  Report Type: 
  Country: None (occurrence: None)
  Receive Date: 20111028
  Receipt Date: 20111017
  Transmission Date: 20120403
  Serious: Yes (Hospitalization)
  Sender: FDA-Public Use
  Company Number: US-EISAI INC-E7389-01653-CLI-US

PATIENT
  Sex: Male

DRUGS (20)
  1. DENOSUMAB [Concomitant]
     Route: 058
     Dates: start: 20110816
  2. MULTI-VITAMIN [Concomitant]
     Indication: SUPPLEMENTATION THERAPY
     Route: 048
     Dates: start: 20100329
  3. SIMVASTATIN [Concomitant]
     Route: 048
     Dates: start: 20100329
  4. OXYCODONE HCL [Concomitant]
     Indication: PAIN
     Route: 048
     Dates: start: 20110908
  5. HYDROMORPHONE HCL [Concomitant]
     Indication: PAIN
     Route: 048
     Dates: start: 20110819, end: 20110906
  6. IBUPROFEN [Concomitant]
     Indication: PAIN
     Route: 048
     Dates: start: 20110823
  7. ZOLPIDEM TARTRATE [Concomitant]
     Indication: INSOMNIA
     Route: 048
     Dates: start: 20110830
  8. METOCLOPRAMIDE [Concomitant]
     Route: 048
     Dates: start: 20110920
  9. GEMCITABINE [Suspect]
     Route: 042
     Dates: start: 20110816
  10. ONDANSETRON [Concomitant]
     Indication: NAUSEA
     Route: 048
     Dates: start: 20110920
  11. LEVOFLOXACIN [Concomitant]
     Indication: NEUTROPENIA
     Route: 048
     Dates: start: 20110826, end: 20110927
  12. FUROSEMIDE [Concomitant]
     Indication: HYPERTENSION
     Route: 042
     Dates: start: 20110816
  13. OXYCODONE HCL [Concomitant]
     Route: 048
     Dates: start: 20110906
  14. NEUPOGEN [Concomitant]
     Route: 058
     Dates: start: 20111017
  15. EPIRUBICIN HYDROCHLORIDE [Suspect]
     Route: 042
     Dates: start: 20110816
  16. PANTOPRAZOLE SODIUM [Concomitant]
     Route: 048
     Dates: start: 20110906, end: 20110927
  17. SODIUM CHLORIDE [Concomitant]
     Indication: DEHYDRATION
     Route: 042
     Dates: start: 20110823, end: 20110823
  18. MAGIC MOUTHWASH [Concomitant]
     Route: 048
     Dates: start: 20110823
  19. SENNA-MINT WAF [Concomitant]
     Indication: CONSTIPATION
     Route: 048
     Dates: start: 20110906
  20. FUROSEMIDE [Concomitant]
     Route: 048
     Dates: start: 20111004

REACTIONS (4)
  - BACTERAEMIA [None]
  - THROMBOCYTOPENIA [None]
  - WHITE BLOOD CELL COUNT DECREASED [None]
  - NEUTROPENIA [None]
